FAERS Safety Report 24332755 (Version 1)
Quarter: 2024Q3

REPORT INFORMATION
  Report Type: Spontaneous
  Country: GB (occurrence: GB)
  Receive Date: 20240918
  Receipt Date: 20240918
  Transmission Date: 20241017
  Serious: Yes (Other)
  Sender: IDORSIA PHARMACEUTICALS
  Company Number: None

PATIENT
  Age: 24 Year
  Sex: Female

DRUGS (12)
  1. QUVIVIQ [Suspect]
     Active Substance: DARIDOREXANT
     Indication: Insomnia
     Dosage: 50 MG
     Route: 065
     Dates: start: 20240731, end: 20240828
  2. HALDOL [Concomitant]
     Active Substance: HALOPERIDOL
  3. QUETIAPINE [Concomitant]
     Active Substance: QUETIAPINE
  4. LITHIUM [Concomitant]
     Active Substance: LITHIUM
  5. VENLAFAXINE [Concomitant]
     Active Substance: VENLAFAXINE HYDROCHLORIDE
  6. PROCYCLIDINE [Concomitant]
     Active Substance: PROCYCLIDINE
  7. MELATONIN [Concomitant]
     Active Substance: MELATONIN
  8. OMEPRAZOLE [Concomitant]
     Active Substance: OMEPRAZOLE
  9. BISOPROLOL [Concomitant]
     Active Substance: BISOPROLOL\BISOPROLOL FUMARATE
  10. CETIRIZINE [Concomitant]
     Active Substance: CETIRIZINE HYDROCHLORIDE
  11. NORIDAY [Concomitant]
     Active Substance: MESTRANOL\NORETHINDRONE
  12. PROMETHAZINE [Concomitant]
     Active Substance: PROMETHAZINE HYDROCHLORIDE

REACTIONS (1)
  - Seizure [Recovered/Resolved]

NARRATIVE: CASE EVENT DATE: 20240826
